FAERS Safety Report 5306166-3 (Version None)
Quarter: 2007Q2

REPORT INFORMATION
  Report Type: 
  Country: None (occurrence: None)
  Receive Date: 20070417
  Receipt Date: 20070403
  Transmission Date: 20071010
  Serious: Yes (Hospitalization, Other)
  Sender: FDA-Public Use
  Company Number: 2007SP005757

PATIENT
  Sex: Male

DRUGS (1)
  1. CLARITIN [Suspect]
     Indication: RHINITIS SEASONAL
     Dosage: 10 MG; ; PO
     Route: 048
     Dates: start: 20070312, end: 20070323

REACTIONS (2)
  - COLON CANCER [None]
  - HAEMATOCHEZIA [None]
